FAERS Safety Report 13904546 (Version 3)
Quarter: 2017Q4

REPORT INFORMATION
  Report Type: Spontaneous
  Country: US (occurrence: US)
  Receive Date: 20170825
  Receipt Date: 20171024
  Transmission Date: 20180320
  Serious: No
  Sender: FDA-Public Use
  Company Number: US-BRISTOL-MYERS SQUIBB COMPANY-BMS-2017-075943

PATIENT
  Age: 84 Year
  Sex: Female

DRUGS (4)
  1. PROPARACAINE                       /00143101/ [Concomitant]
     Indication: HYPOAESTHESIA
     Dosage: 2 GTT, UNK
     Route: 065
     Dates: start: 20170717, end: 20170717
  2. BETADINE [Concomitant]
     Active Substance: POVIDONE-IODINE
     Indication: PRODUCT USED FOR UNKNOWN INDICATION
     Dosage: UNK
     Route: 065
     Dates: start: 20170717, end: 20170717
  3. KENALOG-40 [Suspect]
     Active Substance: TRIAMCINOLONE ACETONIDE
     Indication: DIABETIC RETINAL OEDEMA
     Dosage: 2 MG, QD
     Route: 065
     Dates: start: 20170717
  4. TETRACAINE. [Concomitant]
     Active Substance: TETRACAINE
     Indication: HYPOAESTHESIA
     Dosage: 1 GTT, UNK
     Route: 065
     Dates: start: 20170717

REACTIONS (4)
  - Visual impairment [Recovered/Resolved]
  - Vitreous floaters [Unknown]
  - Product use in unapproved indication [Unknown]
  - Inflammation [Unknown]

NARRATIVE: CASE EVENT DATE: 20170724
